FAERS Safety Report 7118431-8 (Version None)
Quarter: 2010Q4

REPORT INFORMATION
  Report Type: 
  Country: None (occurrence: None)
  Receive Date: 20101123
  Receipt Date: 20101119
  Transmission Date: 20110411
  Serious: Yes (Life-Threatening, Hospitalization)
  Sender: FDA-Public Use
  Company Number: AU-ASTRAZENECA-2010SE55137

PATIENT
  Age: 27826 Day
  Sex: Female

DRUGS (6)
  1. CRESTOR [Suspect]
     Indication: METABOLIC DISORDER
     Route: 048
     Dates: start: 20100728, end: 20100828
  2. ANPEC SR [Concomitant]
  3. ASPIRIN [Concomitant]
  4. COLGOUT [Concomitant]
  5. EFUDIX [Concomitant]
  6. IMDUR [Concomitant]

REACTIONS (3)
  - MYOGLOBINURIA [None]
  - RENAL FAILURE ACUTE [None]
  - RHABDOMYOLYSIS [None]
